FAERS Safety Report 9271595 (Version 2)
Quarter: 2013Q2

REPORT INFORMATION
  Report Type: Spontaneous
  Country: US (occurrence: US)
  Receive Date: 20130506
  Receipt Date: 20130514
  Transmission Date: 20140414
  Serious: Yes (Hospitalization, Other)
  Sender: FDA-Public Use
  Company Number: US-PFIZER INC-2013136484

PATIENT
  Age: 36 Year
  Sex: Female

DRUGS (4)
  1. GEODON [Suspect]
     Indication: PROPHYLAXIS
     Dosage: UNK
  2. HYDROXYZINE HCL [Suspect]
     Indication: TRISMUS
     Dosage: UNK
  3. ZIPRASIDONE HCL [Suspect]
     Indication: PROPHYLAXIS
     Dosage: 80 MG, 2X/DAY
     Dates: start: 2013, end: 20130429
  4. COGENTIN [Suspect]
     Dosage: UNK

REACTIONS (8)
  - Drug dose omission [Unknown]
  - Bipolar disorder [Unknown]
  - Intentional drug misuse [Unknown]
  - Trismus [Recovered/Resolved]
  - Tooth loss [Unknown]
  - Discomfort [Unknown]
  - Abdominal pain upper [Unknown]
  - Dyspepsia [Unknown]
